FAERS Safety Report 19117626 (Version 5)
Quarter: 2021Q4

REPORT INFORMATION
  Report Type: Report from Study
  Country: EG (occurrence: EG)
  Receive Date: 20210409
  Receipt Date: 20211125
  Transmission Date: 20220303
  Serious: Yes (Other)
  Sender: FDA-Public Use
  Company Number: EG-BAYER-2021-058252

PATIENT

DRUGS (6)
  1. EYLEA [Suspect]
     Active Substance: AFLIBERCEPT
     Indication: Diabetic retinal oedema
     Dosage: 1 DF, ONCE (BILATERAL)
     Route: 031
     Dates: start: 202012, end: 202012
  2. EYLEA [Suspect]
     Active Substance: AFLIBERCEPT
     Indication: Diabetic retinal oedema
     Dosage: 1 DF, ONCE (BILATERAL)
     Route: 031
     Dates: start: 202102, end: 202102
  3. EYLEA [Suspect]
     Active Substance: AFLIBERCEPT
     Dosage: 1 DF, ONCE (BILATERAL)
     Route: 031
     Dates: start: 202104, end: 202104
  4. EYLEA [Suspect]
     Active Substance: AFLIBERCEPT
     Dosage: 1 DF, ONCE (OD)
     Route: 031
     Dates: start: 202107, end: 202107
  5. INSULIN NOS [Concomitant]
     Active Substance: INSULIN NOS
     Indication: Diabetes mellitus
     Dosage: 50 IU BEFORE THE MAIN MEAL
     Dates: start: 2016
  6. VICTOZA [Concomitant]
     Active Substance: LIRAGLUTIDE
     Indication: Product used for unknown indication
     Dosage: 1.8 ML EITHER IN THE MORNING OR BEFORE BEDTIME
     Route: 031
     Dates: start: 2016

REACTIONS (4)
  - Vitreous disorder [Unknown]
  - Diabetic retinal oedema [Recovered/Resolved]
  - Ocular vascular disorder [Unknown]
  - Inappropriate schedule of product administration [Not Recovered/Not Resolved]

NARRATIVE: CASE EVENT DATE: 20201217
